FAERS Safety Report 21331329 (Version 1)
Quarter: 2022Q3

REPORT INFORMATION
  Report Type: Spontaneous
  Country: US (occurrence: US)
  Receive Date: 20220914
  Receipt Date: 20220914
  Transmission Date: 20221027
  Serious: Yes (Other)
  Sender: FDA-Public Use
  Company Number: US-BRISTOL-MYERS SQUIBB COMPANY-2022-103629

PATIENT
  Age: 42 Year
  Sex: Female

DRUGS (2)
  1. ORENCIA [Suspect]
     Active Substance: ABATACEPT
     Indication: Ankylosing spondylitis
     Route: 058
     Dates: start: 20220621
  2. ORENCIA [Suspect]
     Active Substance: ABATACEPT

REACTIONS (2)
  - Ankylosing spondylitis [Unknown]
  - Intentional product use issue [Unknown]
